FAERS Safety Report 11574338 (Version 1)
Quarter: 2015Q3

REPORT INFORMATION
  Report Type: Spontaneous
  Country: US (occurrence: None)
  Receive Date: 20150928
  Receipt Date: 20150928
  Transmission Date: 20151125
  Serious: Yes (Hospitalization)
  Sender: FDA-Public Use
  Company Number: None

PATIENT
  Age: 79 Year
  Sex: Male
  Weight: 88.8 kg

DRUGS (1)
  1. IRON SUCROSE [Suspect]
     Active Substance: IRON SUCROSE
     Indication: CHRONIC KIDNEY DISEASE
     Route: 042
     Dates: start: 20150801, end: 20150831

REACTIONS (4)
  - Throat tightness [None]
  - Dysphagia [None]
  - Rash [None]
  - Mass [None]

NARRATIVE: CASE EVENT DATE: 20150831
